FAERS Safety Report 5104614-5 (Version None)
Quarter: 2006Q3

REPORT INFORMATION
  Report Type: 
  Country: None (occurrence: None)
  Receive Date: 20060914
  Receipt Date: 20060619
  Transmission Date: 20061208
  Serious: Yes (Hospitalization, Other)
  Sender: FDA-Public Use
  Company Number: US-BRISTOL-MYERS SQUIBB COMPANY-13416656

PATIENT
  Age: 19 Year
  Sex: Female

DRUGS (2)
  1. BUSPAR [Suspect]
     Indication: CONVERSION DISORDER
     Dosage: 15 MG IN THE AM, AND 30 MG IN THE PM
     Route: 048
  2. BUSPAR [Suspect]
     Indication: ANXIETY
     Dosage: 15 MG IN THE AM, AND 30 MG IN THE PM
     Route: 048

REACTIONS (2)
  - PARTIAL SEIZURES [None]
  - TINNITUS [None]
